FAERS Safety Report 18724815 (Version 1)
Quarter: 2021Q1

REPORT INFORMATION
  Report Type: Spontaneous
  Country: PL (occurrence: PL)
  Receive Date: 20210111
  Receipt Date: 20210111
  Transmission Date: 20210419
  Serious: Yes (Other)
  Sender: FDA-Public Use
  Company Number: PL-TEVA-2021-PL-1867219

PATIENT
  Age: 28 Year
  Sex: Female

DRUGS (31)
  1. CISPLATIN. [Suspect]
     Active Substance: CISPLATIN
     Indication: HORMONE RECEPTOR POSITIVE BREAST CANCER
  2. DOCETAXEL. [Suspect]
     Active Substance: DOCETAXEL
     Indication: HORMONE RECEPTOR POSITIVE BREAST CANCER
  3. PACLITAXEL. [Suspect]
     Active Substance: PACLITAXEL
     Indication: HER2 POSITIVE BREAST CANCER
     Dosage: THREE INFUSIONS
     Route: 050
  4. CYCLOPHOSPHAMIDE. [Suspect]
     Active Substance: CYCLOPHOSPHAMIDE
     Indication: HORMONE RECEPTOR POSITIVE BREAST CANCER
  5. CAPECITABINE. [Suspect]
     Active Substance: CAPECITABINE
     Indication: HORMONE RECEPTOR POSITIVE BREAST CANCER
  6. VINORELBINE [Suspect]
     Active Substance: VINORELBINE TARTRATE
     Indication: HER2 NEGATIVE BREAST CANCER
  7. CISPLATIN. [Suspect]
     Active Substance: CISPLATIN
     Indication: HORMONE RECEPTOR POSITIVE BREAST CANCER
  8. GEMCITABINE. [Suspect]
     Active Substance: GEMCITABINE
     Indication: BREAST CANCER RECURRENT
     Dosage: EIGHT INFUSIONS
     Route: 050
  9. CAPECITABINE. [Suspect]
     Active Substance: CAPECITABINE
     Indication: BREAST CANCER RECURRENT
     Dosage: TWO INFUSIONS
     Route: 050
  10. CAPECITABINE. [Suspect]
     Active Substance: CAPECITABINE
     Indication: HER2 NEGATIVE BREAST CANCER
  11. DOXORUBICIN [Suspect]
     Active Substance: DOXORUBICIN
     Indication: HER2 POSITIVE BREAST CANCER
     Dosage: AS PART OF NEOADJUVANT CHEMOTHERAPY; FOUR COURSES
     Route: 065
  12. DOXORUBICIN [Suspect]
     Active Substance: DOXORUBICIN
     Indication: HORMONE RECEPTOR POSITIVE BREAST CANCER
  13. DOCETAXEL. [Suspect]
     Active Substance: DOCETAXEL
     Indication: HORMONE RECEPTOR POSITIVE BREAST CANCER
  14. VINORELBINE [Suspect]
     Active Substance: VINORELBINE TARTRATE
     Indication: BREAST CANCER RECURRENT
     Dosage: TWO INFUSIONS
     Route: 050
  15. DOXORUBICIN [Suspect]
     Active Substance: DOXORUBICIN
     Indication: HORMONE RECEPTOR POSITIVE BREAST CANCER
     Dosage: TWO INFUSIONS
     Route: 050
  16. PACLITAXEL. [Suspect]
     Active Substance: PACLITAXEL
     Dosage: FIVE INFUSIONS FOLLOWING TRU?CUT BIOPSY
     Route: 050
  17. GEMCITABINE. [Suspect]
     Active Substance: GEMCITABINE
     Indication: HER2 NEGATIVE BREAST CANCER
  18. GEMCITABINE. [Suspect]
     Active Substance: GEMCITABINE
     Indication: HORMONE RECEPTOR POSITIVE BREAST CANCER
  19. DOCETAXEL. [Suspect]
     Active Substance: DOCETAXEL
     Indication: HORMONE RECEPTOR POSITIVE BREAST CANCER
  20. CYCLOPHOSPHAMIDE. [Suspect]
     Active Substance: CYCLOPHOSPHAMIDE
     Indication: HER2 POSITIVE BREAST CANCER
     Dosage: AS PART OF NEOADJUVANT CHEMOTHERAPY; FOUR COURSES
     Route: 065
  21. CYCLOPHOSPHAMIDE. [Suspect]
     Active Substance: CYCLOPHOSPHAMIDE
     Indication: HORMONE RECEPTOR POSITIVE BREAST CANCER
     Dosage: TWO INFUSIONS
     Route: 050
  22. CAPECITABINE. [Suspect]
     Active Substance: CAPECITABINE
     Indication: HORMONE RECEPTOR POSITIVE BREAST CANCER
  23. CISPLATIN. [Suspect]
     Active Substance: CISPLATIN
     Indication: BREAST CANCER RECURRENT
     Dosage: TWO INFUSIONS
     Route: 050
  24. GEMCITABINE. [Suspect]
     Active Substance: GEMCITABINE
     Indication: HORMONE RECEPTOR POSITIVE BREAST CANCER
  25. DOXORUBICIN [Suspect]
     Active Substance: DOXORUBICIN
     Indication: HORMONE RECEPTOR POSITIVE BREAST CANCER
  26. DOCETAXEL. [Suspect]
     Active Substance: DOCETAXEL
     Indication: HER2 POSITIVE BREAST CANCER
     Dosage: AS PART OF NEOADJUVANT CHEMOTHERAPY; THREE COURSES
     Route: 065
  27. CYCLOPHOSPHAMIDE. [Suspect]
     Active Substance: CYCLOPHOSPHAMIDE
     Indication: HORMONE RECEPTOR POSITIVE BREAST CANCER
  28. TRASTUZUMAB. [Suspect]
     Active Substance: TRASTUZUMAB
     Indication: HER2 POSITIVE BREAST CANCER
     Dosage: THIRTEEN COURSES
     Route: 065
  29. VINORELBINE [Suspect]
     Active Substance: VINORELBINE TARTRATE
     Indication: HORMONE RECEPTOR POSITIVE BREAST CANCER
  30. VINORELBINE [Suspect]
     Active Substance: VINORELBINE TARTRATE
     Indication: HORMONE RECEPTOR POSITIVE BREAST CANCER
  31. CISPLATIN. [Suspect]
     Active Substance: CISPLATIN
     Indication: HER2 NEGATIVE BREAST CANCER
     Dosage: EIGHT INFUSIONS, COMBINED WITH GEMCITABINE
     Route: 050

REACTIONS (3)
  - HER2 positive breast cancer [Recovering/Resolving]
  - Drug ineffective [Unknown]
  - Triple negative breast cancer [Recovering/Resolving]
